FAERS Safety Report 9839231 (Version 2)
Quarter: 2014Q3

REPORT INFORMATION
  Report Type: Spontaneous
  Country: US (occurrence: US)
  Receive Date: 20140123
  Receipt Date: 20140818
  Transmission Date: 20150326
  Serious: Yes (Hospitalization, Other)
  Sender: FDA-Public Use
  Company Number: US-009507513-1401USA010755

PATIENT
  Sex: Female
  Weight: 111.57 kg

DRUGS (2)
  1. NUVARING [Suspect]
     Active Substance: ETHINYL ESTRADIOL\ETONOGESTREL
     Indication: ABDOMINAL PAIN
  2. NUVARING [Suspect]
     Active Substance: ETHINYL ESTRADIOL\ETONOGESTREL
     Indication: MENSTRUATION IRREGULAR
     Dosage: 0.12-0.015MG MG/24 HR X3WKS, REMOVE X 1 WK
     Route: 067
     Dates: start: 20120223

REACTIONS (10)
  - Deep vein thrombosis [Unknown]
  - Ovarian cyst [Unknown]
  - Vaginitis bacterial [Unknown]
  - Pulmonary embolism [Unknown]
  - Anxiety [Unknown]
  - Off label use [Unknown]
  - Alanine aminotransferase increased [Unknown]
  - Nausea [Unknown]
  - Vomiting [Unknown]
  - Depression [Unknown]

NARRATIVE: CASE EVENT DATE: 20120223
